FAERS Safety Report 17392330 (Version 2)
Quarter: 2020Q3

REPORT INFORMATION
  Report Type: Other
  Country: DE (occurrence: DE)
  Receive Date: 20200207
  Receipt Date: 20200720
  Transmission Date: 20201102
  Serious: Yes (Other)
  Sender: FDA-Public Use
  Company Number: DE-ROCHE-2435026

PATIENT
  Sex: Female

DRUGS (3)
  1. OCREVUS [Suspect]
     Active Substance: OCRELIZUMAB
     Indication: MULTIPLE SCLEROSIS
     Route: 042
     Dates: start: 20181206, end: 20200108
  2. DEKRISTOL [Concomitant]
     Active Substance: CHOLECALCIFEROL
  3. SALOFALK [Concomitant]

REACTIONS (6)
  - White blood cell count increased [Recovered/Resolved]
  - Fatigue [Recovered/Resolved]
  - Crohn^s disease [Not Recovered/Not Resolved]
  - Throat irritation [Recovered/Resolved]
  - Lymphocyte count increased [Recovered/Resolved]
  - C-reactive protein increased [Recovered/Resolved]

NARRATIVE: CASE EVENT DATE: 20181206
